FAERS Safety Report 13083097 (Version 1)
Quarter: 2017Q1

REPORT INFORMATION
  Report Type: Spontaneous
  Country: DE (occurrence: DE)
  Receive Date: 20170104
  Receipt Date: 20170104
  Transmission Date: 20170428
  Serious: Yes (Hospitalization, Other)
  Sender: FDA-Public Use
  Company Number: DE-ROCHE-1740881

PATIENT
  Sex: Male

DRUGS (4)
  1. PREDNISOLONE. [Concomitant]
     Active Substance: PREDNISOLONE
     Indication: RHEUMATOID ARTHRITIS
     Route: 048
  2. MABTHERA [Suspect]
     Active Substance: RITUXIMAB
     Indication: RHEUMATOID ARTHRITIS
     Route: 042
     Dates: start: 20160119, end: 20160202
  3. METHOTREXATE. [Suspect]
     Active Substance: METHOTREXATE
     Indication: RHEUMATOID ARTHRITIS
     Route: 065
     Dates: start: 2010, end: 201603
  4. MABTHERA [Suspect]
     Active Substance: RITUXIMAB
     Indication: RHEUMATOID ARTHRITIS
     Route: 042
     Dates: start: 2011

REACTIONS (14)
  - Agranulocytosis [Recovered/Resolved]
  - Hypokalaemia [Unknown]
  - Ear disorder [Unknown]
  - Lymphangitis [Recovered/Resolved]
  - Paronychia [Recovered/Resolved]
  - Sepsis [Unknown]
  - Bronchitis [Unknown]
  - Pneumonia [Unknown]
  - Humoral immune defect [Not Recovered/Not Resolved]
  - Oropharyngeal pain [Unknown]
  - Urinary tract infection [Unknown]
  - Liver injury [Unknown]
  - Hypoalbuminaemia [Unknown]
  - Depression [Unknown]

NARRATIVE: CASE EVENT DATE: 2013
